FAERS Safety Report 7274054-1 (Version None)
Quarter: 2011Q1

REPORT INFORMATION
  Report Type: 
  Country: None (occurrence: None)
  Receive Date: 20110203
  Receipt Date: 20110127
  Transmission Date: 20110831
  Serious: Yes (Hospitalization)
  Sender: FDA-Public Use
  Company Number: CH-BRISTOL-MYERS SQUIBB COMPANY-15363849

PATIENT
  Age: 72 Year
  Sex: Male

DRUGS (1)
  1. DASATINIB [Suspect]
     Indication: GASTROINTESTINAL STROMAL TUMOUR
     Dosage: INTERRUPTED ON 30OCT10,24NOV2010
     Route: 048
     Dates: start: 20100930, end: 20110101

REACTIONS (8)
  - HAEMORRHAGE [None]
  - HEADACHE [None]
  - LYMPHADENOPATHY [None]
  - DYSPNOEA [None]
  - PYREXIA [None]
  - PULMONARY EMBOLISM [None]
  - COAGULOPATHY [None]
  - CARDIAC FAILURE [None]
